FAERS Safety Report 15920027 (Version 1)
Quarter: 2019Q1

REPORT INFORMATION
  Report Type: Spontaneous
  Country: US (occurrence: US)
  Receive Date: 20190205
  Receipt Date: 20190205
  Transmission Date: 20190417
  Serious: No
  Sender: FDA-Public Use
  Company Number: US-ROCHE-2142001

PATIENT
  Age: 66 Year
  Sex: Female
  Weight: 70.82 kg

DRUGS (3)
  1. XOLAIR [Suspect]
     Active Substance: OMALIZUMAB
     Indication: ASTHMA
     Route: 065
     Dates: start: 201708
  2. XOLAIR [Suspect]
     Active Substance: OMALIZUMAB
     Dosage: LAST DOSE
     Route: 058
     Dates: start: 20170811, end: 20180711
  3. XOLAIR [Suspect]
     Active Substance: OMALIZUMAB
     Indication: URTICARIA
     Dosage: LATEST INJECTION
     Route: 065
     Dates: start: 20180611

REACTIONS (7)
  - Nausea [Recovered/Resolved]
  - Neuropathy peripheral [Not Recovered/Not Resolved]
  - Oropharyngeal discomfort [Unknown]
  - Pain in extremity [Not Recovered/Not Resolved]
  - Dyspnoea [Recovered/Resolved]
  - Gait inability [Unknown]
  - Ill-defined disorder [Recovered/Resolved]

NARRATIVE: CASE EVENT DATE: 201708
